FAERS Safety Report 25012171 (Version 6)
Quarter: 2025Q3

REPORT INFORMATION
  Report Type: Report from Study
  Country: CA (occurrence: CA)
  Receive Date: 20250226
  Receipt Date: 20250918
  Transmission Date: 20251021
  Serious: Yes (Hospitalization)
  Sender: CELLTRION
  Company Number: CA-CELLTRION INC.-2024CA030838

PATIENT

DRUGS (4)
  1. USTEKINUMAB [Suspect]
     Active Substance: USTEKINUMAB
     Indication: Crohn^s disease
     Dosage: 90 MG, Q4WEEKS/ 90 MILLIGRAM, 1 EVERY 4 WEEKS
     Route: 058
     Dates: start: 202501
  2. USTEKINUMAB [Suspect]
     Active Substance: USTEKINUMAB
     Dosage: 90MG/ML SC ONCE 4 WEEK(S) (ON 06/02)/ 1 EVERY 4 WEEKS
     Route: 058
  3. USTEKINUMAB [Suspect]
     Active Substance: USTEKINUMAB
     Dosage: 90 MG,ONCE A MONTH/ 90 MILLIGRAM, 1 EVERY 1 MONTH
     Route: 058
  4. USTEKINUMAB [Suspect]
     Active Substance: USTEKINUMAB
     Dosage: UNK, 1 EVERY 4 WEEKS
     Route: 058

REACTIONS (6)
  - Muscle spasms [Unknown]
  - Malaise [Unknown]
  - Condition aggravated [Unknown]
  - Frequent bowel movements [Unknown]
  - Nausea [Unknown]
  - Off label use [Unknown]

NARRATIVE: CASE EVENT DATE: 20250206
